FAERS Safety Report 18788233 (Version 1)
Quarter: 2021Q1

REPORT INFORMATION
  Report Type: Spontaneous
  Country: US (occurrence: US)
  Receive Date: 20210126
  Receipt Date: 20210126
  Transmission Date: 20210419
  Serious: No
  Sender: FDA-Public Use
  Company Number: None

PATIENT
  Age: 19 Year
  Sex: Female
  Weight: 84 kg

DRUGS (5)
  1. ARIPIPRAZOLE. [Suspect]
     Active Substance: ARIPIPRAZOLE
     Indication: PSYCHOTIC DISORDER
     Route: 048
     Dates: start: 20201119, end: 20201125
  2. METHYL SALICYLATE MENTHOL [Concomitant]
     Dates: start: 20201118, end: 20201128
  3. ARIPIPRAZOLE. [Suspect]
     Active Substance: ARIPIPRAZOLE
     Indication: AFFECTIVE DISORDER
     Route: 048
     Dates: start: 20201119, end: 20201125
  4. RISPERIDONE M?TAB [Suspect]
     Active Substance: RISPERIDONE
     Dates: start: 20201002, end: 20201201
  5. MULTIVITAMIN [Concomitant]
     Active Substance: VITAMINS
     Dates: start: 20201106

REACTIONS (6)
  - Breast discharge [None]
  - Breast pain [None]
  - Blood prolactin increased [None]
  - Refusal of treatment by patient [None]
  - Back pain [None]
  - Rash pruritic [None]

NARRATIVE: CASE EVENT DATE: 20201125
